FAERS Safety Report 21292736 (Version 1)
Quarter: 2022Q3

REPORT INFORMATION
  Report Type: Spontaneous
  Country: TW (occurrence: None)
  Receive Date: 20220905
  Receipt Date: 20220905
  Transmission Date: 20221027
  Serious: Yes (Death, Other)
  Sender: FDA-Public Use
  Company Number: TW-ROCHE-3171625

PATIENT
  Age: 74 Year
  Sex: Male
  Weight: 55.5 kg

DRUGS (4)
  1. MABTHERA [Suspect]
     Active Substance: RITUXIMAB
     Indication: Anti-neutrophil cytoplasmic antibody positive vasculitis
     Route: 041
     Dates: start: 20220402, end: 20220419
  2. NOREPINEPHRINE [Concomitant]
     Active Substance: NOREPINEPHRINE
  3. GANCICLOVIR [Concomitant]
     Active Substance: GANCICLOVIR
  4. ANIDULAFUNGIN [Concomitant]
     Active Substance: ANIDULAFUNGIN

REACTIONS (9)
  - Pneumonia [Fatal]
  - Acute respiratory distress syndrome [Fatal]
  - Respiratory failure [Fatal]
  - Hypotension [Unknown]
  - Haemoptysis [Unknown]
  - Renal failure [Unknown]
  - Cytomegalovirus infection [Unknown]
  - Pneumocystis jirovecii pneumonia [Unknown]
  - Upper gastrointestinal haemorrhage [Unknown]

NARRATIVE: CASE EVENT DATE: 20220721
